FAERS Safety Report 21884214 (Version 1)
Quarter: 2023Q1

REPORT INFORMATION
  Report Type: Spontaneous
  Country: US (occurrence: None)
  Receive Date: 20230118
  Receipt Date: 20230118
  Transmission Date: 20230418
  Serious: Yes (Hospitalization)
  Sender: FDA-Public Use
  Company Number: None

PATIENT
  Age: 74 Year
  Sex: Male
  Weight: 82 kg

DRUGS (1)
  1. GAMMAKED [Suspect]
     Active Substance: HUMAN IMMUNOGLOBULIN G
     Indication: Multifocal motor neuropathy
     Dosage: OTHER FREQUENCY : EVERY 4 WEEKS;?
     Route: 042

REACTIONS (4)
  - Pruritus [None]
  - Skin exfoliation [None]
  - Periorbital swelling [None]
  - Circumoral swelling [None]

NARRATIVE: CASE EVENT DATE: 20230117
